FAERS Safety Report 5288670-X (Version None)
Quarter: 2007Q2

REPORT INFORMATION
  Report Type: 
  Country: None (occurrence: None)
  Receive Date: 20070405
  Receipt Date: 20070327
  Transmission Date: 20071010
  Serious: Yes (Hospitalization)
  Sender: FDA-Public Use
  Company Number: JP-ROCHE-487117

PATIENT
  Age: 36 Year
  Sex: Female
  Weight: 42 kg

DRUGS (2)
  1. TAMIFLU [Suspect]
     Indication: INFLUENZA
     Route: 048
     Dates: start: 20070301, end: 20070302
  2. PROPYLTHIOURACIL [Concomitant]
     Route: 048
     Dates: start: 19981015

REACTIONS (2)
  - HAEMATOMA [None]
  - PHARYNGEAL HAEMORRHAGE [None]
